FAERS Safety Report 9365907 (Version 2)
Quarter: 2013Q3

REPORT INFORMATION
  Report Type: Spontaneous
  Country: ES (occurrence: ES)
  Receive Date: 20130625
  Receipt Date: 20130830
  Transmission Date: 20140515
  Serious: Yes (Life-Threatening, Hospitalization, Other)
  Sender: FDA-Public Use
  Company Number: PHHY2013ES064407

PATIENT
  Age: 32 Year
  Sex: Female

DRUGS (3)
  1. GILENYA [Suspect]
     Indication: MULTIPLE SCLEROSIS
     Dosage: 0.5 MG, QD
     Route: 048
     Dates: start: 20121023, end: 20121101
  2. TYSABRI [Suspect]
     Dosage: UNK
     Dates: start: 20120413, end: 201205
  3. TYSABRI [Suspect]
     Dosage: UNK
     Dates: start: 20121107

REACTIONS (5)
  - Multiple sclerosis relapse [Recovered/Resolved with Sequelae]
  - Hemiparesis [Recovered/Resolved with Sequelae]
  - Language disorder [Recovered/Resolved with Sequelae]
  - Central nervous system lesion [Recovered/Resolved with Sequelae]
  - Nervousness [Unknown]
